FAERS Safety Report 4993241-6 (Version None)
Quarter: 2006Q1

REPORT INFORMATION
  Report Type: 
  Country: None (occurrence: None)
  Receive Date: 20060314
  Receipt Date: 20050207
  Transmission Date: 20060701
  Serious: Yes (Hospitalization)
  Sender: FDA-Public Use
  Company Number: 200510541BCC

PATIENT
  Age: 68 Year
  Sex: Female
  Weight: 63.5036 kg

DRUGS (3)
  1. ALEVE [Suspect]
     Indication: ARTHRITIS
     Dosage: 440 MG, BID, ORAL
     Route: 048
     Dates: start: 20041101, end: 20041213
  2. AGRYLIN [Suspect]
     Indication: PLATELET COUNT INCREASED
     Dosage: 1.5 MG, BID, ORAL
     Route: 048
     Dates: start: 20000101
  3. FOSAMAX [Concomitant]

REACTIONS (6)
  - FLATULENCE [None]
  - HAEMOGLOBIN DECREASED [None]
  - HEADACHE [None]
  - NAUSEA [None]
  - RECTAL HAEMORRHAGE [None]
  - SMALL INTESTINAL HAEMORRHAGE [None]
